FAERS Safety Report 19687092 (Version 1)
Quarter: 2021Q3

REPORT INFORMATION
  Report Type: Spontaneous
  Country: US (occurrence: US)
  Receive Date: 20210811
  Receipt Date: 20210811
  Transmission Date: 20211014
  Serious: No
  Sender: FDA-Public Use
  Company Number: US-PFIZER INC-2021881041

PATIENT
  Age: 83 Year
  Sex: Female
  Weight: 90.72 kg

DRUGS (8)
  1. PREDNISONE. [Suspect]
     Active Substance: PREDNISONE
     Indication: TREMOR
  2. GABAPENTIN. [Suspect]
     Active Substance: GABAPENTIN
     Indication: TREMOR
  3. GABAPENTIN. [Suspect]
     Active Substance: GABAPENTIN
     Indication: HYPERSENSITIVITY
     Dosage: 100 MG
  4. FAMOTIDINE. [Suspect]
     Active Substance: FAMOTIDINE
     Indication: TREMOR
  5. PREDNISONE. [Suspect]
     Active Substance: PREDNISONE
     Indication: HYPERSENSITIVITY
     Dosage: 20 MG
  6. LEVETIRACETAM. [Suspect]
     Active Substance: LEVETIRACETAM
     Indication: HYPERSENSITIVITY
     Dosage: 500 MG
  7. LEVETIRACETAM. [Suspect]
     Active Substance: LEVETIRACETAM
     Indication: TREMOR
  8. FAMOTIDINE. [Suspect]
     Active Substance: FAMOTIDINE
     Indication: HYPERSENSITIVITY
     Dosage: 20 MG

REACTIONS (2)
  - Off label use [Unknown]
  - Feeling abnormal [Unknown]
